FAERS Safety Report 24179085 (Version 1)
Quarter: 2024Q3

REPORT INFORMATION
  Report Type: Spontaneous
  Country: US (occurrence: None)
  Receive Date: 20240805
  Receipt Date: 20240805
  Transmission Date: 20241016
  Serious: Yes (Hospitalization)
  Sender: Public
  Company Number: None

PATIENT
  Age: 41 Year
  Sex: Female

DRUGS (15)
  1. TACROLIMUS [Suspect]
     Active Substance: TACROLIMUS
     Indication: Immunosuppressant drug therapy
     Dosage: 5 MG TWICE A DAY ORAL
     Route: 048
  2. CRESEMBA [Concomitant]
     Active Substance: ISAVUCONAZONIUM SULFATE
  3. MYCOPHENOLIC ACID [Concomitant]
     Active Substance: MYCOPHENOLIC ACID
  4. TACROLIMUS [Concomitant]
     Active Substance: TACROLIMUS
  5. Mag-oxide 400mg [Concomitant]
  6. OMEPRAZOLE [Concomitant]
     Active Substance: OMEPRAZOLE
  7. AMLODIPINE [Concomitant]
     Active Substance: AMLODIPINE BESYLATE
  8. PREDNISONE [Concomitant]
     Active Substance: PREDNISONE
  9. TOPIRAMATE [Concomitant]
     Active Substance: TOPIRAMATE
  10. AMITRIPTYLINE [Concomitant]
     Active Substance: AMITRIPTYLINE
  11. Calcium Citrate + D3 max [Concomitant]
  12. FAMCICLOVIR [Concomitant]
     Active Substance: FAMCICLOVIR
  13. SMZ/TMP 400-80mg [Concomitant]
  14. ASPIRIN [Concomitant]
     Active Substance: ASPIRIN
  15. FUROSEMIDE [Concomitant]
     Active Substance: FUROSEMIDE

REACTIONS (4)
  - Toxicity to various agents [None]
  - Incorrect dose administered [None]
  - Accidental overdose [None]
  - Product communication issue [None]

NARRATIVE: CASE EVENT DATE: 20240711
